FAERS Safety Report 16407060 (Version 1)
Quarter: 2019Q2

REPORT INFORMATION
  Report Type: Report from Study
  Country: CA (occurrence: CA)
  Receive Date: 20190608
  Receipt Date: 20190608
  Transmission Date: 20190711
  Serious: Yes (Hospitalization)
  Sender: FDA-Public Use
  Company Number: CA-BRISTOL-MYERS SQUIBB COMPANY-BMS-2019-032840

PATIENT
  Age: 82 Year
  Sex: Male

DRUGS (1)
  1. NIVOLUMAB [Suspect]
     Active Substance: NIVOLUMAB
     Indication: MALIGNANT MELANOMA
     Dosage: 255 MG Q2WEEK
     Route: 042
     Dates: start: 20190314

REACTIONS (8)
  - Decreased appetite [Unknown]
  - Somnolence [Unknown]
  - Insomnia [Unknown]
  - Speech disorder [Unknown]
  - Malaise [Unknown]
  - Asthenia [Unknown]
  - Gait disturbance [Unknown]
  - Visual impairment [Unknown]

NARRATIVE: CASE EVENT DATE: 20190314
